FAERS Safety Report 7577464-8 (Version None)
Quarter: 2011Q2

REPORT INFORMATION
  Report Type: 
  Country: None (occurrence: None)
  Receive Date: 20110628
  Receipt Date: 20090930
  Transmission Date: 20111010
  Serious: Yes (Hospitalization, Other)
  Sender: FDA-Public Use
  Company Number: US-BAYER-2011-009053

PATIENT
  Age: 63 Year
  Sex: Male
  Weight: 86 kg

DRUGS (51)
  1. TRASYLOL [Suspect]
     Dosage: 50 ML/HOUR INFUSION
     Route: 042
     Dates: start: 20061213, end: 20061213
  2. GLIPIZIDE [Concomitant]
     Indication: DIABETES MELLITUS
     Dosage: 5MG TWICE DAILY BEFORE MEALS
     Route: 048
     Dates: start: 20061126
  3. ATENOLOL [Concomitant]
     Dosage: 25 MG, BID
     Route: 048
     Dates: start: 20010101
  4. K-DUR [Concomitant]
     Dosage: 20 MEQ, BID
  5. PRIMACOR [Concomitant]
     Dosage: UNK
     Dates: start: 20061213
  6. VANCOMYCIN [Concomitant]
     Dosage: 1 G, UNK
     Route: 042
  7. TRASYLOL [Suspect]
     Indication: TRICUSPID VALVE REPLACEMENT
     Dosage: 199 ML LOADING DOSE
     Route: 042
     Dates: start: 20061213, end: 20061213
  8. DIGOXIN [Concomitant]
     Indication: CARDIAC FAILURE CONGESTIVE
     Dosage: 0.25 MG, QD
     Route: 048
  9. LASIX [Concomitant]
     Indication: CARDIAC FAILURE CONGESTIVE
     Dosage: 80MG EVERY MORNING
     Route: 048
  10. LASIX [Concomitant]
     Dosage: 60 MG, UNK
     Route: 042
  11. LOVASTATIN [Concomitant]
     Indication: BLOOD CHOLESTEROL ABNORMAL
     Dosage: 20 MG AT BEDTIME
     Route: 048
  12. VENLAFAXINE HYDROCHLORIDE [Concomitant]
     Dosage: 150MG 1CAPSULE DAILY
     Route: 048
  13. ZESTRIL [Concomitant]
     Dosage: 2.5 MG, QD
     Dates: start: 20060911
  14. LOPRESSOR [Concomitant]
     Dosage: 25 MG, BID
     Dates: start: 20061126
  15. NITROGLYCERIN [Concomitant]
     Dosage: 26.17 MICROGRAMS
     Route: 042
     Dates: start: 20061213
  16. LASIX [Concomitant]
     Dosage: 40 MG, BID
     Dates: start: 20060911
  17. LASIX [Concomitant]
     Dosage: 40 MG, BID
     Route: 042
     Dates: start: 20061206
  18. COUMADIN [Concomitant]
     Indication: ATRIAL FIBRILLATION
     Dosage: 5 MG, QD
     Route: 048
  19. NITROGLYCERIN [Concomitant]
     Indication: CHEST PAIN
     Dosage: 0.4MG 1EVERY 5 MINUTES UP TO THREE TABLETS
     Route: 060
  20. COREG [Concomitant]
     Dosage: 3.125 MG, BID
     Dates: start: 20060911
  21. DOBUTAMINE HCL [Concomitant]
     Dosage: 500 MG/250 ML FLUIDS
     Route: 041
     Dates: start: 20061206
  22. LIPITOR [Concomitant]
     Dosage: 10 MG, QD
     Dates: start: 20061206
  23. TECHNETIUM TC-99M MEBROFENIN [Concomitant]
     Dosage: UNK
     Dates: start: 20060801
  24. NOREPINEPHRINE BITARTRATE [Concomitant]
     Dosage: 78.13 ML,
     Route: 042
  25. CARVEDILOL [Concomitant]
     Dosage: 6.25 MG, BID
     Route: 048
     Dates: start: 20060101
  26. COUMADIN [Concomitant]
     Dosage: 4 MG, UNK
     Route: 048
     Dates: start: 20010101
  27. ATENOLOL [Concomitant]
     Dosage: 50 MG, QD
  28. ALDACTONE [Concomitant]
     Dosage: 25 MG, QD
     Dates: start: 20061206
  29. ZAROXOLYN [Concomitant]
     Dosage: 2.5 MG, QD
     Dates: start: 20061206
  30. FRESH FROZEN PLASMA [Concomitant]
     Dosage: 1520 CC
     Route: 042
     Dates: start: 20061213
  31. TRASYLOL [Suspect]
     Indication: AORTIC VALVE REPLACEMENT
     Dosage: 1 ML, INITIAL TEST DOSE
     Route: 042
     Dates: start: 20061213, end: 20061213
  32. EFFEXOR [Concomitant]
     Indication: BIPOLAR II DISORDER
     Dosage: 75 MG, QD
     Dates: start: 20061126
  33. ACETYLSALICYLIC ACID SRT [Concomitant]
     Dosage: 81 MG, QD
     Route: 048
     Dates: start: 20060911
  34. DOBUTAMINE HCL [Concomitant]
     Dosage: 5.67 ML, UNK
     Route: 042
     Dates: start: 20061213
  35. GLUCOTROL [Concomitant]
     Dosage: 5 MG IN AM
     Dates: start: 20061206
  36. KLONOPIN [Concomitant]
     Dosage: 1 MG AT BEDTIME
     Dates: start: 20061206
  37. LEVOPHED [Concomitant]
     Dosage: UNK
     Dates: start: 20061213
  38. RED BLOOD CELLS [Concomitant]
     Dosage: 2689 CC
     Route: 042
     Dates: start: 20061213
  39. PLATELETS [Concomitant]
     Dosage: 737 CC
     Route: 042
     Dates: start: 20061213
  40. LASIX [Concomitant]
     Dosage: 40MG EVERY EVENING
     Route: 048
  41. CARVEDILOL [Concomitant]
     Indication: CARDIAC FAILURE CONGESTIVE
     Dosage: 3.125 MG, BID
     Route: 048
  42. ADVICOR [Concomitant]
     Dosage: UNK
     Dates: start: 20060911
  43. MONOPRIL [Concomitant]
     Dosage: 5 MG, QD
     Dates: start: 20061126
  44. HEPARIN [Concomitant]
     Dosage: 25000 UNITS/500 ML
     Route: 041
     Dates: start: 20061206
  45. EPINEPHRINE [Concomitant]
     Dosage: 19.95 ML, UNK
     Route: 042
     Dates: start: 20061213
  46. DIGOXIN [Concomitant]
     Dosage: 0.125 MG, QD
     Dates: start: 20060911
  47. DIGOXIN [Concomitant]
     Dosage: 0.26 MG, QD
     Route: 048
     Dates: start: 20010101
  48. LISINOPRIL [Concomitant]
     Indication: CARDIAC FAILURE CONGESTIVE
     Dosage: 5 MG, QD
     Route: 048
  49. COUMADIN [Concomitant]
     Dosage: 2 MG, UNK
     Route: 048
     Dates: start: 20010101
  50. NIACIN [Concomitant]
     Indication: BLOOD CHOLESTEROL ABNORMAL
     Dosage: 1000MG AT BEDTIME
     Route: 048
  51. HEPARIN [Concomitant]
     Dosage: 68000 U, UNK
     Route: 042
     Dates: start: 20061213

REACTIONS (13)
  - RENAL INJURY [None]
  - PAIN [None]
  - UNEVALUABLE EVENT [None]
  - MULTI-ORGAN FAILURE [None]
  - DEPRESSION [None]
  - RENAL FAILURE [None]
  - EMOTIONAL DISTRESS [None]
  - ANXIETY [None]
  - FEAR [None]
  - FEAR OF DEATH [None]
  - NERVOUSNESS [None]
  - ANHEDONIA [None]
  - INJURY [None]
